FAERS Safety Report 12355156 (Version 1)
Quarter: 2016Q2

REPORT INFORMATION
  Report Type: Spontaneous
  Country: US (occurrence: None)
  Receive Date: 20160510
  Receipt Date: 20160510
  Transmission Date: 20160815
  Serious: No
  Sender: FDA-Public Use
  Company Number: None

PATIENT
  Age: 38 Year
  Sex: Female
  Weight: 54.89 kg

DRUGS (10)
  1. FLAXSEED [Concomitant]
     Active Substance: FLAX SEED
  2. TYLENOL [Concomitant]
     Active Substance: ACETAMINOPHEN
  3. ALLEGRA [Concomitant]
     Active Substance: FEXOFENADINE HYDROCHLORIDE
  4. VITAMIN C [Concomitant]
     Active Substance: ASCORBIC ACID
  5. VITAMIN D [Concomitant]
     Active Substance: CHOLECALCIFEROL
  6. TOPIRAMATE. [Suspect]
     Active Substance: TOPIRAMATE
     Indication: PERIPHERAL SWELLING
     Route: 048
     Dates: start: 20160419, end: 20160506
  7. CALCIUM/MAGNESIUM [Concomitant]
  8. VITAMIN B [Concomitant]
     Active Substance: VITAMIN B
  9. VITAMIN B12 [Concomitant]
     Active Substance: CYANOCOBALAMIN
  10. TOPIRAMATE. [Suspect]
     Active Substance: TOPIRAMATE
     Indication: PAIN IN EXTREMITY
     Route: 048
     Dates: start: 20160419, end: 20160506

REACTIONS (2)
  - Irritability [None]
  - Anxiety [None]

NARRATIVE: CASE EVENT DATE: 20160506
